FAERS Safety Report 18573727 (Version 2)
Quarter: 2021Q1

REPORT INFORMATION
  Report Type: Spontaneous
  Country: US (occurrence: US)
  Receive Date: 20201203
  Receipt Date: 20210204
  Transmission Date: 20210419
  Serious: Yes (Other)
  Sender: FDA-Public Use
  Company Number: US-ROCHE-2721102

PATIENT
  Sex: Female

DRUGS (3)
  1. XELODA [Suspect]
     Active Substance: CAPECITABINE
     Indication: PRODUCT USED FOR UNKNOWN INDICATION
     Route: 048
  2. TUKYSA [Suspect]
     Active Substance: TUCATINIB
     Indication: BREAST CANCER FEMALE
     Route: 065
  3. TUKYSA [Suspect]
     Active Substance: TUCATINIB
     Indication: BREAST CANCER FEMALE
     Dosage: DOSE :300MG QAM AND 150MG QPM
     Route: 065

REACTIONS (6)
  - Rash [Unknown]
  - Gastrointestinal ulcer [Unknown]
  - Mouth ulceration [Unknown]
  - Mouth haemorrhage [Unknown]
  - Gastrointestinal haemorrhage [Unknown]
  - Diarrhoea [Recovering/Resolving]
